FAERS Safety Report 6602273-3 (Version None)
Quarter: 2010Q1

REPORT INFORMATION
  Report Type: 
  Country: None (occurrence: None)
  Receive Date: 20100225
  Receipt Date: 20100222
  Transmission Date: 20100710
  Serious: Yes (Death, Hospitalization)
  Sender: FDA-Public Use
  Company Number: NL-ROXANE LABORATORIES, INC.-2010-RO-00188RO

PATIENT
  Age: 70 Year
  Sex: Male

DRUGS (21)
  1. FUROSEMIDE [Suspect]
     Dosage: 40 MG
     Route: 042
  2. FUROSEMIDE [Suspect]
     Dosage: 500 MG
     Route: 042
  3. BUPRENORPHINE HYDROCHLORIDE [Suspect]
     Route: 062
  4. MIDAZOLAM HCL [Suspect]
     Route: 042
  5. GENTAMICIN [Suspect]
     Indication: PREOPERATIVE CARE
     Dosage: 400 MG
     Route: 042
  6. GENTAMICIN [Suspect]
     Indication: STAPHYLOCOCCAL SEPSIS
  7. CEFTAZIDIM [Suspect]
     Dosage: 3000 MG
     Route: 042
  8. FLOXACILLIN SODIUM [Suspect]
     Dosage: 12 G
     Route: 042
  9. CIPROFLOXACIN [Suspect]
     Dosage: 800 MG
     Route: 042
  10. POTASSIUM CHLORIDE [Suspect]
     Route: 042
  11. POTASSIUM CHLORIDE [Suspect]
     Route: 048
  12. METOCLOPRAMIDE HYDROCHLORIDE [Suspect]
     Dosage: 30 MG
     Route: 042
  13. DALTEPARIN SODIUM [Suspect]
     Route: 058
  14. FENTANYL [Suspect]
     Route: 042
  15. OLANZAPINE [Suspect]
     Dosage: 10 MG
     Route: 048
  16. OLANZAPINE [Suspect]
     Dosage: 5 MG
     Route: 048
  17. ACENOCOUMAROL [Suspect]
     Route: 048
  18. NOREPINEPHRINE [Suspect]
     Route: 042
  19. GABAPENTIN [Suspect]
     Dosage: 300 MG
     Route: 048
  20. GABAPENTIN [Suspect]
     Dosage: 900 MG
     Route: 048
  21. SPIRONOLACTONE [Suspect]
     Dosage: 25 MG
     Route: 048

REACTIONS (12)
  - ARTHRITIS INFECTIVE [None]
  - DEATH [None]
  - ENTEROCUTANEOUS FISTULA [None]
  - FLUID IMBALANCE [None]
  - HAEMORRHAGE [None]
  - ILEUS PARALYTIC [None]
  - INTESTINAL PERFORATION [None]
  - OTOTOXICITY [None]
  - RENAL FAILURE ACUTE [None]
  - RESPIRATORY FAILURE [None]
  - STAPHYLOCOCCAL SEPSIS [None]
  - WOUND DEHISCENCE [None]
